FAERS Safety Report 5229238-0 (Version None)
Quarter: 2007Q1

REPORT INFORMATION
  Report Type: 
  Country: None (occurrence: None)
  Receive Date: 20061201
  Receipt Date: 20060804
  Transmission Date: 20070707
  Serious: No
  Sender: FDA-Public Use
  Company Number: US200608001193

PATIENT
  Age: 55 Year
  Sex: Female

DRUGS (4)
  1. CYMBALTA [Suspect]
     Indication: DEPRESSION
     Dosage: 60 MG, EACH MORNING, ORAL
     Route: 048
     Dates: start: 20050401, end: 20060730
  2. SEROQUEL [Concomitant]
  3. SYNTHROID [Concomitant]
  4. AMBIEN [Concomitant]

REACTIONS (14)
  - AGITATION [None]
  - DEPRESSED LEVEL OF CONSCIOUSNESS [None]
  - DRUG WITHDRAWAL SYNDROME [None]
  - DRY EYE [None]
  - HANGOVER [None]
  - HEADACHE [None]
  - HOT FLUSH [None]
  - IMMOBILE [None]
  - IRRITABILITY [None]
  - NIGHTMARE [None]
  - PALPITATIONS [None]
  - SLEEP DISORDER [None]
  - STOMACH DISCOMFORT [None]
  - THIRST [None]
